FAERS Safety Report 7025878-7 (Version None)
Quarter: 2010Q4

REPORT INFORMATION
  Report Type: 
  Country: None (occurrence: None)
  Receive Date: 20101004
  Receipt Date: 20100924
  Transmission Date: 20110411
  Serious: No
  Sender: FDA-Public Use
  Company Number: US-BIOGENIDEC-2010BI032012

PATIENT
  Age: 43 Year
  Sex: Female

DRUGS (1)
  1. TYSABRI [Suspect]
     Indication: MULTIPLE SCLEROSIS
     Route: 042
     Dates: start: 20100819

REACTIONS (10)
  - BACK PAIN [None]
  - BALANCE DISORDER [None]
  - CONSTIPATION [None]
  - EAR INFECTION [None]
  - FEAR [None]
  - LIP SWELLING [None]
  - MIDDLE EAR EFFUSION [None]
  - PARAESTHESIA ORAL [None]
  - TOOTHACHE [None]
  - VERTIGO [None]
